FAERS Safety Report 7769310-4 (Version None)
Quarter: 2011Q3

REPORT INFORMATION
  Report Type: 
  Country: None (occurrence: None)
  Receive Date: 20110922
  Receipt Date: 20110916
  Transmission Date: 20111222
  Serious: Yes (Hospitalization)
  Sender: FDA-Public Use
  Company Number: JP-B.I. PHARMACEUTICALS,INC./RIDGEFIELD-2011-BP-20403NB

PATIENT
  Sex: Female
  Weight: 59 kg

DRUGS (9)
  1. ALDACTONE [Concomitant]
     Dosage: 25 MG
     Route: 048
     Dates: start: 20070908
  2. DIART [Concomitant]
     Dosage: 60 MG
     Route: 048
     Dates: start: 20050625
  3. MUCOSTA [Concomitant]
     Dosage: 100 MG
     Route: 048
     Dates: start: 20050702, end: 20110721
  4. RISEDRONATE SODIUM [Concomitant]
     Route: 048
     Dates: start: 20110531, end: 20110721
  5. CELECOXIB [Concomitant]
     Dosage: 100 MG
     Route: 048
     Dates: start: 20070616, end: 20110721
  6. DIGOXIN [Concomitant]
     Dosage: 0.125 MG
     Route: 048
     Dates: start: 20110222
  7. FAMOSTAGINE [Concomitant]
     Dosage: 20 MG
     Route: 048
     Dates: start: 20110618, end: 20110725
  8. PRADAXA [Suspect]
     Indication: ATRIAL FIBRILLATION
     Route: 048
     Dates: start: 20110426, end: 20110726
  9. ALLORIN [Concomitant]
     Dosage: 200 MG
     Route: 048
     Dates: start: 20110220, end: 20110725

REACTIONS (2)
  - TUBULOINTERSTITIAL NEPHRITIS [None]
  - LYMPHOEDEMA [None]
